FAERS Safety Report 14115460 (Version 1)
Quarter: 2017Q4

REPORT INFORMATION
  Report Type: Spontaneous
  Country: US (occurrence: US)
  Receive Date: 20171023
  Receipt Date: 20171023
  Transmission Date: 20180321
  Serious: No
  Sender: FDA-Public Use
  Company Number: US-ALLERGAN-1727612US

PATIENT
  Sex: Male

DRUGS (3)
  1. LINZESS [Suspect]
     Active Substance: LINACLOTIDE
     Indication: OBSTRUCTIVE DEFAECATION
     Dosage: 290 ?G, QD
     Route: 048
     Dates: start: 2014
  2. LINZESS [Suspect]
     Active Substance: LINACLOTIDE
     Indication: CONSTIPATION
     Dosage: 290 ?G, PRN
     Route: 048
     Dates: start: 2014
  3. NADOLOL. [Concomitant]
     Active Substance: NADOLOL
     Indication: ATRIAL FIBRILLATION
     Dosage: UNK UNK, QD
     Route: 048

REACTIONS (4)
  - Drug dose omission [Unknown]
  - Drug ineffective [Unknown]
  - Inappropriate schedule of drug administration [Unknown]
  - Off label use [Unknown]
